FAERS Safety Report 9991335 (Version 2)
Quarter: 2014Q2

REPORT INFORMATION
  Report Type: Spontaneous
  Country: JP (occurrence: JP)
  Receive Date: 20140310
  Receipt Date: 20140404
  Transmission Date: 20141212
  Serious: Yes (Other)
  Sender: FDA-Public Use
  Company Number: JP-PFIZER INC-2014065305

PATIENT
  Age: 12 Month
  Sex: Male

DRUGS (1)
  1. METHYLPREDNISOLONE SODIUM SUCCINATE [Suspect]
     Indication: KAWASAKI^S DISEASE
     Dosage: UNK
     Route: 042

REACTIONS (4)
  - Toxic skin eruption [Unknown]
  - Autoimmune lymphoproliferative syndrome [Unknown]
  - Hypocomplementaemia [Unknown]
  - Immune complex level increased [Unknown]
